FAERS Safety Report 4679263-3 (Version None)
Quarter: 2005Q2

REPORT INFORMATION
  Report Type: 
  Country: None (occurrence: None)
  Receive Date: 20050531
  Receipt Date: 20050519
  Transmission Date: 20051028
  Serious: Yes (Other)
  Sender: FDA-Public Use
  Company Number: HQWYE170502JUN04

PATIENT
  Age: 48 Year
  Sex: Female

DRUGS (12)
  1. RAPAMUNE [Suspect]
     Indication: PROPHYLAXIS AGAINST TRANSPLANT REJECTION
     Dosage: SEE IMAGE
     Route: 048
     Dates: start: 20030709, end: 20040624
  2. RAPAMUNE [Suspect]
     Indication: PROPHYLAXIS AGAINST TRANSPLANT REJECTION
     Dosage: SEE IMAGE
     Route: 048
     Dates: start: 20040625
  3. . [Concomitant]
  4. PREDNISONE [Concomitant]
  5. ERYTHROPOIETIN (ERYTHROPOIETIN) [Concomitant]
  6. DILTIAZEM [Concomitant]
  7. ZOCOR [Concomitant]
  8. ZOLOFT [Concomitant]
  9. RAMIPRIL [Concomitant]
  10. OMEPRAZOLE [Concomitant]
  11. FLUCLOXACILLIN (FLUCLOXACILLIN) [Concomitant]
  12. DOXYCYCLINE [Concomitant]

REACTIONS (14)
  - ACIDOSIS [None]
  - ANAEMIA [None]
  - AZOTAEMIA [None]
  - BLOOD FOLATE ABNORMAL [None]
  - BLOOD PARATHYROID HORMONE ABNORMAL [None]
  - BLOOD POTASSIUM INCREASED [None]
  - DIALYSIS [None]
  - DISEASE PROGRESSION [None]
  - DRUG EFFECT DECREASED [None]
  - DRUG RESISTANCE [None]
  - FLUID OVERLOAD [None]
  - GRAFT LOSS [None]
  - HYPERTENSION [None]
  - KIDNEY TRANSPLANT REJECTION [None]
